FAERS Safety Report 12949724 (Version 1)
Quarter: 2016Q4

REPORT INFORMATION
  Report Type: Spontaneous
  Country: JP (occurrence: JP)
  Receive Date: 20161116
  Receipt Date: 20161116
  Transmission Date: 20170207
  Serious: Yes (Other)
  Sender: FDA-Public Use
  Company Number: JP-PFIZER INC-2016530260

PATIENT
  Age: 39 Year
  Sex: Male
  Weight: 64 kg

DRUGS (38)
  1. CAMPTO [Suspect]
     Active Substance: IRINOTECAN
     Dosage: 260 MG, 1X/DAY
     Route: 041
     Dates: start: 20140508, end: 20140508
  2. CAMPTO [Suspect]
     Active Substance: IRINOTECAN
     Dosage: 260 MG, 1X/DAY
     Route: 041
     Dates: start: 20140821, end: 20140821
  3. CAMPTO [Suspect]
     Active Substance: IRINOTECAN
     Dosage: 210 MG, 1X/DAY
     Route: 041
     Dates: start: 20140925, end: 20140925
  4. ELPLAT [Suspect]
     Active Substance: OXALIPLATIN
     Dosage: UNK
     Dates: start: 20140522, end: 20140522
  5. ELPLAT [Suspect]
     Active Substance: OXALIPLATIN
     Dosage: 150 MG, 1X/DAY
     Route: 041
     Dates: start: 20140619, end: 20140619
  6. ELPLAT [Suspect]
     Active Substance: OXALIPLATIN
     Dosage: 115 MG, 1X/DAY
     Route: 041
     Dates: start: 20140821, end: 20140821
  7. LEVOFOLINATE [Suspect]
     Active Substance: LEVOLEUCOVORIN CALCIUM
     Dosage: 350 MG, 1X/DAY
     Route: 041
     Dates: start: 20140619, end: 20140619
  8. LEVOFOLINATE [Suspect]
     Active Substance: LEVOLEUCOVORIN CALCIUM
     Dosage: 350 MG, 1X/DAY
     Route: 041
     Dates: start: 20140807, end: 20140807
  9. CAMPTO [Suspect]
     Active Substance: IRINOTECAN
     Dosage: 260 MG, 1X/DAY
     Route: 041
     Dates: start: 20140619, end: 20140619
  10. CAMPTO [Suspect]
     Active Substance: IRINOTECAN
     Dosage: 260 MG, 1X/DAY
     Route: 041
     Dates: start: 20140703, end: 20140703
  11. CAMPTO [Suspect]
     Active Substance: IRINOTECAN
     Dosage: UNK
     Dates: start: 20140807, end: 20140807
  12. ELPLAT [Suspect]
     Active Substance: OXALIPLATIN
     Dosage: 115 MG, 1X/DAY
     Route: 041
     Dates: start: 20140904, end: 20140904
  13. LEVOFOLINATE [Suspect]
     Active Substance: LEVOLEUCOVORIN CALCIUM
     Dosage: 350 MG, 1X/DAY
     Route: 041
     Dates: start: 20140508, end: 20140508
  14. LEVOFOLINATE [Suspect]
     Active Substance: LEVOLEUCOVORIN CALCIUM
     Dosage: 350 MG, 1X/DAY
     Route: 041
     Dates: start: 20140821, end: 20140821
  15. CAMPTO [Suspect]
     Active Substance: IRINOTECAN
     Dosage: 260 MG, 1X/DAY
     Route: 041
     Dates: start: 20140605, end: 20140605
  16. CAMPTO [Suspect]
     Active Substance: IRINOTECAN
     Dosage: 260 MG, 1X/DAY
     Route: 041
     Dates: start: 20140718, end: 20140718
  17. CAMPTO [Suspect]
     Active Substance: IRINOTECAN
     Dosage: 210 MG, 1X/DAY
     Route: 041
     Dates: start: 20141023, end: 20141023
  18. ELPLAT [Suspect]
     Active Substance: OXALIPLATIN
     Dosage: 150 MG, 1X/DAY
     Route: 041
     Dates: start: 20140508, end: 20140508
  19. LEVOFOLINATE [Suspect]
     Active Substance: LEVOLEUCOVORIN CALCIUM
     Indication: PANCREATIC CARCINOMA
     Dosage: 350 MG, 1X/DAY
     Route: 041
     Dates: start: 20140424, end: 20140424
  20. LEVOFOLINATE [Suspect]
     Active Substance: LEVOLEUCOVORIN CALCIUM
     Dosage: 350 MG, 1X/DAY
     Dates: start: 20140904, end: 20140904
  21. CAMPTO [Suspect]
     Active Substance: IRINOTECAN
     Indication: PANCREATIC CARCINOMA
     Dosage: 260 MG, 1X/DAY
     Route: 041
     Dates: start: 20140424, end: 20140424
  22. CAMPTO [Suspect]
     Active Substance: IRINOTECAN
     Dosage: 260 MG, 1X/DAY
     Route: 041
     Dates: start: 20140904, end: 20140904
  23. ELPLAT [Suspect]
     Active Substance: OXALIPLATIN
     Indication: PANCREATIC CARCINOMA
     Dosage: 150 MG, 1X/DAY
     Route: 041
     Dates: start: 20140424, end: 20140424
  24. ELPLAT [Suspect]
     Active Substance: OXALIPLATIN
     Dosage: 115 MG, 1X/DAY
     Route: 041
     Dates: start: 20140718, end: 20140718
  25. ELPLAT [Suspect]
     Active Substance: OXALIPLATIN
     Dosage: 115 MG, 1X/DAY
     Route: 041
     Dates: start: 20140807, end: 20140807
  26. LEVOFOLINATE [Suspect]
     Active Substance: LEVOLEUCOVORIN CALCIUM
     Dosage: 350 MG, 1X/DAY
     Route: 041
     Dates: start: 20140605, end: 20140605
  27. LEVOFOLINATE [Suspect]
     Active Substance: LEVOLEUCOVORIN CALCIUM
     Dosage: 350 MG, 1X/DAY
     Dates: start: 20140703, end: 20140703
  28. LEVOFOLINATE [Suspect]
     Active Substance: LEVOLEUCOVORIN CALCIUM
     Dosage: UNK
     Dates: start: 20140718, end: 20140718
  29. LEVOFOLINATE [Suspect]
     Active Substance: LEVOLEUCOVORIN CALCIUM
     Dosage: UNK
     Dates: start: 20140925, end: 20140925
  30. LEVOFOLINATE [Suspect]
     Active Substance: LEVOLEUCOVORIN CALCIUM
     Dosage: 350 MG, 1X/DAY
     Route: 041
     Dates: start: 20141023, end: 20141023
  31. 5-FU /00098801/ [Concomitant]
     Active Substance: FLUOROURACIL
     Dosage: UNK
     Dates: start: 20140424, end: 20141023
  32. CAMPTO [Suspect]
     Active Substance: IRINOTECAN
     Dosage: 260 MG, 1X/DAY
     Route: 041
     Dates: start: 20140522, end: 20140522
  33. ELPLAT [Suspect]
     Active Substance: OXALIPLATIN
     Dosage: 150 MG, 1X/DAY
     Route: 041
     Dates: start: 20140605, end: 20140605
  34. ELPLAT [Suspect]
     Active Substance: OXALIPLATIN
     Dosage: 90 MG, 1X/DAY
     Route: 041
     Dates: start: 20140925, end: 20140925
  35. CAMPTO [Suspect]
     Active Substance: IRINOTECAN
     Dosage: UNK
     Dates: start: 20141009, end: 20141009
  36. ELPLAT [Suspect]
     Active Substance: OXALIPLATIN
     Dosage: 150 MG, 1X/DAY
     Route: 041
     Dates: start: 20140703, end: 20140703
  37. LEVOFOLINATE [Suspect]
     Active Substance: LEVOLEUCOVORIN CALCIUM
     Dosage: UNK
     Dates: start: 20140522, end: 20140522
  38. LEVOFOLINATE [Suspect]
     Active Substance: LEVOLEUCOVORIN CALCIUM
     Dosage: 350 MG, 1X/DAY
     Route: 041
     Dates: start: 20141009, end: 20141009

REACTIONS (8)
  - Decreased appetite [Unknown]
  - Peripheral sensory neuropathy [Unknown]
  - Pyrexia [Unknown]
  - Neutrophil count decreased [Unknown]
  - Vomiting [Unknown]
  - Diarrhoea [Unknown]
  - Fatigue [Unknown]
  - Nausea [Unknown]
